FAERS Safety Report 5229553-0 (Version None)
Quarter: 2007Q1

REPORT INFORMATION
  Report Type: 
  Country: None (occurrence: None)
  Receive Date: 20061201
  Receipt Date: 20060925
  Transmission Date: 20070707
  Serious: No
  Sender: FDA-Public Use
  Company Number: 2006PV021927

PATIENT
  Age: 60 Year
  Sex: Female
  Weight: 113.3993 kg

DRUGS (6)
  1. BYETTA [Suspect]
     Indication: DIABETES MELLITUS NON-INSULIN-DEPENDENT
     Dosage: SEE IMAGE
     Route: 058
     Dates: start: 20060801, end: 20060901
  2. BYETTA [Suspect]
     Indication: DIABETES MELLITUS NON-INSULIN-DEPENDENT
     Dosage: SEE IMAGE
     Route: 058
     Dates: start: 20060901
  3. BYETTA [Suspect]
     Indication: DIABETES MELLITUS NON-INSULIN-DEPENDENT
     Dosage: SEE IMAGE
     Route: 058
     Dates: start: 20060901
  4. AVANDAMET [Concomitant]
  5. AVANDIA [Concomitant]
  6. GLUCOPHAGE [Concomitant]

REACTIONS (7)
  - BRONCHITIS [None]
  - COUGH [None]
  - DIZZINESS [None]
  - NAUSEA [None]
  - PHARYNGOLARYNGEAL PAIN [None]
  - SINUSITIS [None]
  - VOMITING [None]
